FAERS Safety Report 20694873 (Version 1)
Quarter: 2022Q2

REPORT INFORMATION
  Report Type: Spontaneous
  Country: DE (occurrence: DE)
  Receive Date: 20220411
  Receipt Date: 20220411
  Transmission Date: 20220720
  Serious: Yes (Death, Congenital Anomaly, Other)
  Sender: FDA-Public Use
  Company Number: DE-EMBRYOTOX-202106844

PATIENT
  Sex: Male
  Weight: .65 kg

DRUGS (1)
  1. ISOTRETINOIN [Suspect]
     Active Substance: ISOTRETINOIN
     Indication: Acne
     Dosage: 10 MG/DAY
     Route: 064
     Dates: start: 20210110, end: 20210214

REACTIONS (2)
  - Foetal exposure during pregnancy [Fatal]
  - Cerebellar hypoplasia [Fatal]
